FAERS Safety Report 18139409 (Version 1)
Quarter: 2020Q3

REPORT INFORMATION
  Report Type: Spontaneous
  Country: US (occurrence: US)
  Receive Date: 20200812
  Receipt Date: 20200812
  Transmission Date: 20201103
  Serious: Yes (Hospitalization, Other)
  Sender: FDA-Public Use
  Company Number: US-SA-2020SA198117

PATIENT

DRUGS (6)
  1. HEPARIN [Interacting]
     Active Substance: HEPARIN SODIUM
     Dosage: UNK
  2. NYSTATIN. [Concomitant]
     Active Substance: NYSTATIN
     Indication: EVIDENCE BASED TREATMENT
  3. DOCETAXEL. [Suspect]
     Active Substance: DOCETAXEL
     Indication: PROSTATE CANCER STAGE IV
     Route: 065
  4. WARFARIN SODIUM. [Interacting]
     Active Substance: WARFARIN SODIUM
     Dosage: UNK
  5. CIPROFLOXACIN. [Interacting]
     Active Substance: CIPROFLOXACIN
     Indication: ANTIBIOTIC THERAPY
     Dosage: UNK
  6. NYSTATIN. [Concomitant]
     Active Substance: NYSTATIN
     Indication: OESOPHAGEAL CANDIDIASIS
     Dosage: UNK

REACTIONS (4)
  - Neutropenia [Unknown]
  - Drug interaction [Recovered/Resolved]
  - Leukopenia [Recovered/Resolved]
  - Anticoagulation drug level above therapeutic [Recovered/Resolved]
